FAERS Safety Report 7018192-7 (Version None)
Quarter: 2010Q3

REPORT INFORMATION
  Report Type: 
  Country: None (occurrence: None)
  Receive Date: 20100928
  Receipt Date: 20100920
  Transmission Date: 20110219
  Serious: Yes (Death, Hospitalization, Other)
  Sender: FDA-Public Use
  Company Number: EG-ROCHE-728464

PATIENT

DRUGS (6)
  1. MYCOPHENOLATE MOFETIL [Suspect]
     Dosage: MMF COMMENCING THERAPY
     Route: 065
  2. MYCOPHENOLATE MOFETIL [Suspect]
     Dosage: AT THE BEGINING OF WEEK 2.
     Route: 065
  3. MYCOPHENOLATE MOFETIL [Suspect]
     Dosage: AT THE BEGINING OF WEEK 3.
     Route: 065
  4. CYCLOSPORINE [Suspect]
     Dosage: DRUG: CSA, AT BEGINING OF WEEK 1.
     Route: 065
  5. CYCLOSPORINE [Suspect]
     Dosage: DOSE REDUCED BY 25% AT THE BEGINING OF WEEK 2.
     Route: 065
  6. CYCLOSPORINE [Suspect]
     Dosage: CICLOSPORINE DOSE ADJUSTED TO ACHIEVE A TROUGH BLOOD LEVEL OF 75-100 NG/ML AT BEGINING OF WEEK 3.
     Route: 065

REACTIONS (17)
  - ANAEMIA [None]
  - BACTERIAL INFECTION [None]
  - CARDIOVASCULAR DISORDER [None]
  - CYTOMEGALOVIRUS INFECTION [None]
  - FUNGAL INFECTION [None]
  - GASTROINTESTINAL DISORDER [None]
  - GINGIVAL HYPERPLASIA [None]
  - GRAFT LOSS [None]
  - HEPATITIS [None]
  - HYPERTRICHOSIS [None]
  - INFECTION [None]
  - NEOPLASM MALIGNANT [None]
  - NEUROTOXICITY [None]
  - PNEUMONIA BACTERIAL [None]
  - TRANSPLANT REJECTION [None]
  - TUBERCULOSIS [None]
  - VIRAL INFECTION [None]
